FAERS Safety Report 4557309-0 (Version None)
Quarter: 2005Q1

REPORT INFORMATION
  Report Type: 
  Country: None (occurrence: None)
  Receive Date: 20050118
  Receipt Date: 20050104
  Transmission Date: 20050727
  Serious: Yes (Hospitalization, Other)
  Sender: FDA-Public Use
  Company Number: 2004093174

PATIENT
  Age: 16 Year
  Sex: Male

DRUGS (4)
  1. ZOLOFT [Suspect]
     Indication: DEPRESSION
     Dosage: 75 MG (50 MG), ORAL
     Route: 048
     Dates: start: 20040601, end: 20041206
  2. ZOLOFT [Suspect]
     Indication: OBSESSIVE-COMPULSIVE DISORDER
     Dosage: 75 MG (50 MG), ORAL
     Route: 048
     Dates: start: 20040601, end: 20041206
  3. PREMARIN [Suspect]
  4. PROVERA [Suspect]

REACTIONS (2)
  - LEUKOPENIA [None]
  - NEUTROPENIA [None]
